FAERS Safety Report 4855866-8 (Version None)
Quarter: 2005Q4

REPORT INFORMATION
  Report Type: 
  Country: None (occurrence: None)
  Receive Date: 20051216
  Receipt Date: 20051213
  Transmission Date: 20060501
  Serious: Yes (Death, Life-Threatening)
  Sender: FDA-Public Use
  Company Number: 2005AP06397

PATIENT
  Age: 87 Year
  Sex: Male

DRUGS (4)
  1. ZOLADEX [Suspect]
     Indication: PROSTATE CANCER
     Route: 058
     Dates: start: 20030701
  2. ZOLADEX [Suspect]
     Indication: PROSTATE CANCER
     Route: 058
  3. CASODEX [Suspect]
     Indication: PROSTATE CANCER
     Route: 048
     Dates: start: 20030701
  4. ESTRACYT [Concomitant]
     Route: 048
     Dates: start: 20040701

REACTIONS (1)
  - INTERSTITIAL LUNG DISEASE [None]
